FAERS Safety Report 8496816-5 (Version None)
Quarter: 2012Q3

REPORT INFORMATION
  Report Type: 
  Country: None (occurrence: None)
  Receive Date: 20120709
  Receipt Date: 20120704
  Transmission Date: 20120928
  Serious: Yes (Other)
  Sender: FDA-Public Use
  Company Number: ME-PFIZER INC-2012136298

PATIENT
  Age: 72 Year
  Sex: Male
  Weight: 120 kg

DRUGS (7)
  1. LEVOTHYROXINE SODIUM [Interacting]
     Indication: HYPERTHYROIDISM
     Dosage: 0.125 MG, 1X/DAY
     Route: 048
  2. CALCIUM [Concomitant]
     Dosage: UNK
     Route: 048
  3. ZOMETA [Concomitant]
     Dosage: UNK
  4. LYRICA [Suspect]
     Indication: NEURALGIA
     Dosage: 75 MG, 2X/DAY
     Route: 048
     Dates: start: 20120301, end: 20120501
  5. MONOPRIL-HCT [Concomitant]
     Dosage: 20 MG, 1X/DAY
     Route: 048
  6. ATORVASTATIN CALCIUM [Concomitant]
     Dosage: 10 MG, 1X/DAY
     Route: 048
  7. CONCOR [Concomitant]
     Dosage: 2.5 MG, UNK
     Route: 048

REACTIONS (2)
  - WEIGHT INCREASED [None]
  - DRUG INTERACTION [None]
